FAERS Safety Report 4402264-7 (Version None)
Quarter: 2004Q3

REPORT INFORMATION
  Report Type: 
  Country: None (occurrence: None)
  Receive Date: 20040720
  Receipt Date: 20030530
  Transmission Date: 20050211
  Serious: Yes (Hospitalization)
  Sender: FDA-Public Use
  Company Number: US-GLAXOSMITHKLINE-A0411183A

PATIENT
  Age: 45 Year
  Sex: Female
  Weight: 103.6 kg

DRUGS (2)
  1. LOTRONEX [Suspect]
     Indication: DIVERTICULITIS
     Route: 048
     Dates: start: 20000721, end: 20001129
  2. PREVACID [Concomitant]
     Dosage: 30MG PER DAY
     Dates: start: 20000721

REACTIONS (6)
  - ADVERSE EVENT [None]
  - COLECTOMY PARTIAL [None]
  - COLITIS [None]
  - CROHN'S DISEASE [None]
  - DIVERTICULITIS [None]
  - ODYNOPHAGIA [None]
